FAERS Safety Report 9386854 (Version 1)
Quarter: 2013Q3

REPORT INFORMATION
  Report Type: Spontaneous
  Country: US (occurrence: US)
  Receive Date: 20130708
  Receipt Date: 20130708
  Transmission Date: 20140515
  Serious: Yes (Other)
  Sender: FDA-Public Use
  Company Number: US-PFIZER INC-2013200279

PATIENT
  Age: 60 Year
  Sex: Female
  Weight: 61.22 kg

DRUGS (2)
  1. CHANTIX [Suspect]
     Indication: SMOKING CESSATION THERAPY
     Dosage: UNK
     Dates: start: 201306, end: 201306
  2. CHANTIX [Suspect]
     Dosage: 1 MG, 2X/DAY
     Dates: start: 201306, end: 201306

REACTIONS (2)
  - Suicide attempt [Not Recovered/Not Resolved]
  - Nervousness [Not Recovered/Not Resolved]
